FAERS Safety Report 11878777 (Version 1)
Quarter: 2015Q4

REPORT INFORMATION
  Report Type: Spontaneous
  Country: NL (occurrence: NL)
  Receive Date: 20151230
  Receipt Date: 20151230
  Transmission Date: 20160305
  Serious: Yes (Death, Hospitalization)
  Sender: FDA-Public Use
  Company Number: NL-PFIZER INC-2015473930

PATIENT
  Age: 65 Year
  Sex: Male

DRUGS (20)
  1. AMIODARONE HCL [Suspect]
     Active Substance: AMIODARONE HYDROCHLORIDE
     Indication: ATRIAL FIBRILLATION
     Dosage: 200 MG, UNK
     Route: 048
     Dates: start: 2003, end: 2015
  2. ATROVENT [Concomitant]
     Active Substance: IPRATROPIUM BROMIDE
     Dosage: UNK
  3. NOVORAPID [Concomitant]
     Active Substance: INSULIN ASPART
     Dosage: UNK
  4. PANTOZOL [Concomitant]
     Active Substance: PANTOPRAZOLE SODIUM
     Dosage: UNK
  5. BURINEX [Concomitant]
     Active Substance: BUMETANIDE
     Dosage: UNK
  6. IMODIUM [Concomitant]
     Active Substance: LOPERAMIDE HYDROCHLORIDE
     Dosage: UNK
  7. CALCICHEW [Concomitant]
     Active Substance: CALCIUM CARBONATE
     Dosage: UNK
  8. EUTHYROX [Concomitant]
     Active Substance: LEVOTHYROXINE SODIUM
     Dosage: UNK
  9. NYSTATINE [Concomitant]
     Dosage: UNK
  10. HYDROCORTISON [Concomitant]
     Active Substance: HYDROCORTISONE
     Dosage: UNK
  11. PARACETAMOL [Concomitant]
     Active Substance: ACETAMINOPHEN
     Dosage: UNK
  12. THIAMAZOL [Concomitant]
     Active Substance: METHIMAZOLE
     Dosage: UNK
  13. SLOW-K [Concomitant]
     Active Substance: POTASSIUM CHLORIDE
     Dosage: UNK
  14. ACENOCOUMAROL [Concomitant]
     Active Substance: ACENOCOUMAROL
     Dosage: UNK
  15. BISOPROLOL [Concomitant]
     Active Substance: BISOPROLOL
     Dosage: UNK
  16. ISORDIL [Concomitant]
     Active Substance: ISOSORBIDE DINITRATE
     Dosage: UNK
  17. DOBUTAMINE [Concomitant]
     Active Substance: DOBUTAMINE\DOBUTAMINE HYDROCHLORIDE
     Dosage: UNK
  18. POTASSIUM [Concomitant]
     Active Substance: POTASSIUM
     Dosage: UNK
  19. LANOXIN [Concomitant]
     Active Substance: DIGOXIN
     Dosage: UNK
  20. SPIRONOLACTONE. [Concomitant]
     Active Substance: SPIRONOLACTONE
     Dosage: UNK

REACTIONS (2)
  - Hyperthyroidism [Unknown]
  - Pneumonitis [Fatal]

NARRATIVE: CASE EVENT DATE: 20151116
